FAERS Safety Report 4872548-7 (Version None)
Quarter: 2006Q1

REPORT INFORMATION
  Report Type: 
  Country: None (occurrence: None)
  Receive Date: 20060103
  Receipt Date: 20051220
  Transmission Date: 20060701
  Serious: Yes (Death)
  Sender: FDA-Public Use
  Company Number: FR200512003726

PATIENT
  Age: 75 Year
  Sex: Female

DRUGS (1)
  1. ZYPREXA [Suspect]
     Indication: DELUSIONAL DISORDER, UNSPECIFIED TYPE
     Dosage: 7.5 MG, DAILY (1/D), ORAL
     Route: 048

REACTIONS (1)
  - DEATH [None]
